FAERS Safety Report 5867854-3 (Version None)
Quarter: 2008Q3

REPORT INFORMATION
  Report Type: 
  Country: None (occurrence: None)
  Receive Date: 20080902
  Receipt Date: 20080826
  Transmission Date: 20090109
  Serious: Yes (Hospitalization)
  Sender: FDA-Public Use
  Company Number: US-GENENTECH-266906

PATIENT
  Sex: Male
  Weight: 30 kg

DRUGS (1)
  1. RITUXAN [Suspect]
     Indication: ANAEMIA HAEMOLYTIC AUTOIMMUNE
     Dosage: 375 MG/M2, SINGLE
     Route: 042
     Dates: start: 20080806

REACTIONS (1)
  - CATHETER THROMBOSIS [None]
